FAERS Safety Report 15740156 (Version 1)
Quarter: 2018Q4

REPORT INFORMATION
  Report Type: Spontaneous
  Country: US (occurrence: US)
  Receive Date: 20181219
  Receipt Date: 20181219
  Transmission Date: 20190205
  Serious: Yes (Other)
  Sender: FDA-Public Use
  Company Number: US-GALEN LIMITED-AE-2018-1344

PATIENT
  Age: 36 Year
  Sex: Female

DRUGS (6)
  1. MACROBID [Concomitant]
     Active Substance: NITROFURANTOIN\NITROFURANTOIN MONOHYDRATE
  2. POTASSIUM CHLORIDE. [Concomitant]
     Active Substance: POTASSIUM CHLORIDE
     Dates: start: 20181130
  3. ADASUVE [Suspect]
     Active Substance: LOXAPINE
     Indication: AGITATION
     Route: 055
     Dates: start: 20181130, end: 20181130
  4. METHAMPHETAMINE [Suspect]
     Active Substance: METHAMPHETAMINE
  5. CITALOPRAM [Concomitant]
     Active Substance: CITALOPRAM HYDROBROMIDE
  6. ADASUVE [Suspect]
     Active Substance: LOXAPINE
     Indication: BIPOLAR I DISORDER

REACTIONS (2)
  - Seizure [Recovered/Resolved]
  - Wheezing [Recovered/Resolved]

NARRATIVE: CASE EVENT DATE: 20181130
